FAERS Safety Report 8816746 (Version 2)
Quarter: 2012Q4

REPORT INFORMATION
  Report Type: 
  Country: US (occurrence: None)
  Receive Date: 20121001
  Receipt Date: 20121004
  Transmission Date: 20130627
  Serious: Yes (Hospitalization, Other)
  Sender: FDA-Public Use
  Company Number: JPI-P-025268

PATIENT
  Age: 44 Year
  Sex: Female
  Weight: 53.07 kg

DRUGS (18)
  1. XYREM [Suspect]
     Indication: NARCOLEPSY
     Dosage: 4.5 gm
     Route: 048
     Dates: start: 20120515
  2. XYREM [Suspect]
     Indication: EXCESSIVE DAYTIME SLEEPINESS
     Dosage: 4.5 gm
     Route: 048
     Dates: start: 20120515
  3. XYREM [Suspect]
     Indication: NARCOLEPSY
     Dosage: TITRATING DOSE
     Route: 048
  4. XYREM [Suspect]
     Indication: EXCESSIVE DAYTIME SLEEPINESS
     Dosage: TITRATING DOSE
     Route: 048
  5. XYREM [Suspect]
     Indication: NARCOLEPSY
     Dosage: 4.5 GM
     Route: 048
     Dates: start: 20120806
  6. XYREM [Suspect]
     Indication: EXCESSIVE DAYTIME SLEEPINESS
     Dosage: 4.5 GM
     Route: 048
     Dates: start: 20120806
  7. XYREM [Suspect]
     Indication: NARCOLEPSY
  8. XYREM [Suspect]
     Indication: EXCESSIVE DAYTIME SLEEPINESS
  9. AMPHETAMINE+DEXTROAMPHETAMINE [Concomitant]
  10. CONJUGATED ESTROGENS [Concomitant]
  11. LEVOTHYROXINE [Concomitant]
  12. ALPRAZOLAM [Concomitant]
  13. ONDANSETRON HYDROCHLORIDE [Concomitant]
  14. METHADONE [Concomitant]
  15. NATALIZUMAB [Concomitant]
  16. FISH OIL [Concomitant]
  17. FLAXSEED OIL [Concomitant]
  18. TIZANIDINE [Concomitant]

REACTIONS (27)
  - Precancerous cells present [None]
  - Haematemesis [None]
  - Decreased appetite [None]
  - Joint swelling [None]
  - Weight increased [None]
  - Dehydration [None]
  - Depression [None]
  - Aphagia [None]
  - Tongue coated [None]
  - Stomatitis [None]
  - Eye disorder [None]
  - Rapid eye movements sleep abnormal [None]
  - Polydipsia [None]
  - Multiple sclerosis relapse [None]
  - Hernia pain [None]
  - Drug ineffective [None]
  - Pollakiuria [None]
  - Urinary incontinence [None]
  - Lethargy [None]
  - Tinnitus [None]
  - Headache [None]
  - Formication [None]
  - Feeling cold [None]
  - Insomnia [None]
  - Dyskinesia [None]
  - Vomiting [None]
  - Decreased appetite [None]
